FAERS Safety Report 12238420 (Version 1)
Quarter: 2016Q2

REPORT INFORMATION
  Report Type: Report from Study
  Country: TW (occurrence: TW)
  Receive Date: 20160405
  Receipt Date: 20160405
  Transmission Date: 20160815
  Serious: Yes (Death)
  Sender: FDA-Public Use
  Company Number: TW-PFIZER INC-2016172245

PATIENT
  Age: 41 Year
  Sex: Male

DRUGS (2)
  1. IFOSFAMIDE. [Suspect]
     Active Substance: IFOSFAMIDE
     Indication: BONE GIANT CELL TUMOUR
     Dosage: UNK
  2. DOXORUBICIN HCL [Suspect]
     Active Substance: DOXORUBICIN HYDROCHLORIDE
     Indication: BONE GIANT CELL TUMOUR
     Dosage: UNK

REACTIONS (3)
  - Bone marrow failure [Fatal]
  - Sepsis [Fatal]
  - Respiratory failure [Fatal]
